FAERS Safety Report 12925001 (Version 1)
Quarter: 2016Q4

REPORT INFORMATION
  Report Type: Spontaneous
  Country: US (occurrence: US)
  Receive Date: 20161108
  Receipt Date: 20161108
  Transmission Date: 20170207
  Serious: Yes (Death)
  Sender: FDA-Public Use
  Company Number: US-RELYPSA-RLY2016003518

PATIENT
  Age: 87 Year
  Sex: Male

DRUGS (19)
  1. ARANESP [Concomitant]
     Active Substance: DARBEPOETIN ALFA
  2. TAMSULOSIN HCL [Concomitant]
     Active Substance: TAMSULOSIN
  3. CALCITRIOL. [Concomitant]
     Active Substance: CALCITRIOL
  4. MAGNESIUM OXIDE. [Concomitant]
     Active Substance: MAGNESIUM OXIDE
  5. EYE DROPS [Concomitant]
     Active Substance: TETRAHYDROZOLINE HYDROCHLORIDE
  6. SODIUM CITRATE. [Concomitant]
     Active Substance: SODIUM CITRATE
  7. VITAMIN D2 [Concomitant]
     Active Substance: ERGOCALCIFEROL
  8. TYLENOL [Concomitant]
     Active Substance: ACETAMINOPHEN
  9. LATANOPROST. [Concomitant]
     Active Substance: LATANOPROST
  10. ATORVASTATIN CALCIUM. [Concomitant]
     Active Substance: ATORVASTATIN CALCIUM
  11. LIPITOR [Concomitant]
     Active Substance: ATORVASTATIN CALCIUM
  12. FLOMAX [Concomitant]
     Active Substance: TAMSULOSIN HYDROCHLORIDE
  13. VITAMIN D [Concomitant]
     Active Substance: CHOLECALCIFEROL
  14. ALPHAGAN P [Concomitant]
     Active Substance: BRIMONIDINE TARTRATE
  15. VELTASSA [Suspect]
     Active Substance: PATIROMER
     Indication: HYPERKALAEMIA
     Dosage: 8.4 G, QD
     Route: 048
     Dates: start: 20160315
  16. HUMULIN N [Concomitant]
     Active Substance: INSULIN HUMAN
  17. FERAHEME [Concomitant]
     Active Substance: FERUMOXYTOL NON-STOICHIOMETRIC MAGNETITE
  18. NORVASC [Concomitant]
     Active Substance: AMLODIPINE BESYLATE
  19. ATENOLOL. [Concomitant]
     Active Substance: ATENOLOL

REACTIONS (1)
  - Death [Fatal]

NARRATIVE: CASE EVENT DATE: 20161024
